FAERS Safety Report 15772269 (Version 1)
Quarter: 2018Q4

REPORT INFORMATION
  Report Type: Spontaneous
  Country: US (occurrence: US)
  Receive Date: 20181228
  Receipt Date: 20181228
  Transmission Date: 20190205
  Serious: No
  Sender: FDA-Public Use
  Company Number: US-BRISTOL-MYERS SQUIBB COMPANY-BMS-2018-122385

PATIENT
  Sex: Female
  Weight: 83.9 kg

DRUGS (1)
  1. NULOJIX [Suspect]
     Active Substance: BELATACEPT
     Indication: RENAL TRANSPLANT
     Dosage: 425 MG, UNK
     Route: 042
     Dates: start: 201810

REACTIONS (2)
  - Dry skin [Unknown]
  - Infusion site extravasation [Unknown]
